FAERS Safety Report 21058153 (Version 1)
Quarter: 2022Q3

REPORT INFORMATION
  Report Type: Spontaneous
  Country: CN (occurrence: CN)
  Receive Date: 20220708
  Receipt Date: 20220708
  Transmission Date: 20221026
  Serious: Yes (Hospitalization)
  Sender: FDA-Public Use
  Company Number: CN-PFIZER INC-202200935551

PATIENT
  Age: 52 Year
  Sex: Female

DRUGS (1)
  1. AROMASIN [Suspect]
     Active Substance: EXEMESTANE
     Indication: Therapeutic procedure
     Dosage: UNK
     Dates: start: 202203

REACTIONS (17)
  - Asthenia [Unknown]
  - Hepatic function abnormal [Unknown]
  - Palpitations [Unknown]
  - Decreased appetite [Unknown]
  - Dry mouth [Unknown]
  - Breath odour [Unknown]
  - Alanine aminotransferase increased [Unknown]
  - Aspartate aminotransferase increased [Unknown]
  - Blood alkaline phosphatase increased [Unknown]
  - Gamma-glutamyltransferase increased [Unknown]
  - Blood bilirubin increased [Unknown]
  - Bilirubin conjugated increased [Unknown]
  - Metabolic function test abnormal [Unknown]
  - Glycocholic acid increased [Unknown]
  - Leucine aminopeptidase increased [Unknown]
  - Adenosine deaminase increased [Unknown]
  - Retinol binding protein decreased [Unknown]

NARRATIVE: CASE EVENT DATE: 20220702
